FAERS Safety Report 16932533 (Version 1)
Quarter: 2019Q4

REPORT INFORMATION
  Report Type: Spontaneous
  Country: US (occurrence: US)
  Receive Date: 20191017
  Receipt Date: 20191017
  Transmission Date: 20200122
  Serious: No
  Sender: FDA-Public Use
  Company Number: US-JNJFOC-20191015623

PATIENT
  Sex: Female

DRUGS (1)
  1. ZYRTEC [Suspect]
     Active Substance: CETIRIZINE HYDROCHLORIDE
     Indication: POLYCYTHAEMIA VERA
     Route: 065

REACTIONS (3)
  - Therapeutic response unexpected [Unknown]
  - Weight increased [Unknown]
  - Product use in unapproved indication [Unknown]
